FAERS Safety Report 9177933 (Version 2)
Quarter: 2013Q2

REPORT INFORMATION
  Report Type: Report from Study
  Country: AU (occurrence: AU)
  Receive Date: 20130321
  Receipt Date: 20130416
  Transmission Date: 20140414
  Serious: Yes (Hospitalization, Disabling, Other)
  Sender: FDA-Public Use
  Company Number: AU-VERTEX PHARMACEUTICALS INC.-2013-003904

PATIENT
  Age: 73 Year
  Sex: Female
  Weight: 64 kg

DRUGS (10)
  1. TELAPREVIR [Suspect]
     Indication: HEPATITIS C
     Dosage: 750 MG, TID
     Route: 048
     Dates: start: 20130114, end: 20130326
  2. PEGINTERFERON ALFA 2A [Suspect]
     Indication: CHRONIC HEPATITIS C
     Dosage: DOSAGE FORM: UNSPECIFIED
     Route: 065
     Dates: start: 20130114, end: 20130326
  3. RIBAVIRIN [Suspect]
     Indication: CHRONIC HEPATITIS C
     Dosage: DOSAGE FORM: UNSPECIFIED
     Route: 065
     Dates: start: 20130114, end: 20130218
  4. LIPITOR [Suspect]
     Indication: HYPERLIPIDAEMIA
     Dosage: DOSAGE FORM: UNSPECIFIED
     Route: 065
     Dates: start: 2006, end: 20130313
  5. COVERSYL [Concomitant]
     Indication: HYPERTENSION
     Dosage: DOSAGE FORM: UNSPECIFIED
     Route: 048
     Dates: start: 2000, end: 20130313
  6. WARFARIN [Concomitant]
     Indication: ANTICOAGULANT THERAPY
     Dosage: DOSAGE FORM: UNSPECIFIED
     Route: 048
     Dates: start: 2000
  7. OSTELIN [Concomitant]
     Indication: VITAMIN SUPPLEMENTATION
     Dosage: DOSAGE FORM: TABLETS
     Route: 065
     Dates: start: 2010, end: 20130313
  8. CALTRATE [Concomitant]
     Indication: VITAMIN SUPPLEMENTATION
     Dosage: DOSAGE FORM: TABLET
     Route: 065
     Dates: start: 2010, end: 20130313
  9. PHENERGAN [Concomitant]
     Indication: ANTIALLERGIC THERAPY
     Dosage: DOSAGE FORM: UNSPECIFIED, 10 TO 20 MG
     Route: 065
     Dates: start: 20130319
  10. PARACETAMOL [Concomitant]
     Indication: ANALGESIC THERAPY
     Dosage: DOSAGE FORM: UNSPECIFIED, 500 TO 1000 MG
     Route: 065
     Dates: start: 20130319

REACTIONS (6)
  - Renal impairment [Not Recovered/Not Resolved]
  - Dehydration [Not Recovered/Not Resolved]
  - Rash maculo-papular [Not Recovered/Not Resolved]
  - Pyrexia [Not Recovered/Not Resolved]
  - Nausea [Not Recovered/Not Resolved]
  - Anaemia [Unknown]
